FAERS Safety Report 17864294 (Version 2)
Quarter: 2023Q2

REPORT INFORMATION
  Report Type: Spontaneous
  Country: AT (occurrence: AT)
  Receive Date: 20200605
  Receipt Date: 20230529
  Transmission Date: 20230721
  Serious: Yes (Death, Life-Threatening, Hospitalization, Other)
  Sender: FDA-Public Use
  Company Number: None

PATIENT
  Age: 77 Year
  Sex: Male

DRUGS (6)
  1. DOCETAXEL [Suspect]
     Active Substance: DOCETAXEL
     Indication: Product used for unknown indication
     Dosage: UNK
     Dates: start: 201912, end: 202001
  2. RAMUCIRUMAB [Suspect]
     Active Substance: RAMUCIRUMAB
     Indication: Product used for unknown indication
     Dosage: UNK
     Dates: start: 201912, end: 202001
  3. INFLIXIMAB [Suspect]
     Active Substance: INFLIXIMAB
     Indication: Non-small cell lung cancer
     Dosage: 40 MG, Q3W
     Route: 065
     Dates: start: 201907, end: 201908
  4. KEYTRUDA [Suspect]
     Active Substance: PEMBROLIZUMAB
     Indication: Non-small cell lung cancer
     Dosage: 200 MG, EVERY THREE WEEKS
     Route: 065
     Dates: start: 201804, end: 2019
  5. KEYTRUDA [Suspect]
     Active Substance: PEMBROLIZUMAB
     Dosage: 400 MILLIGRAM, 6 WEEKS INTERVAL
     Route: 065
     Dates: start: 201907, end: 201908
  6. KEYTRUDA [Suspect]
     Active Substance: PEMBROLIZUMAB
     Dosage: 200 MG, EVERY THREE WEEKS
     Route: 065
     Dates: start: 201909

REACTIONS (2)
  - Respiratory failure [Fatal]
  - Pneumonitis [Unknown]

NARRATIVE: CASE EVENT DATE: 20200101
